FAERS Safety Report 8728213 (Version 3)
Quarter: 2012Q4

REPORT INFORMATION
  Report Type: 
  Country: US (occurrence: US)
  Receive Date: 20120817
  Receipt Date: 20120925
  Transmission Date: 20130627
  Serious: No
  Sender: FDA-Public Use
  Company Number: US-PFIZER INC-2012200014

PATIENT
  Age: 51 Year
  Sex: Female
  Weight: 47 kg

DRUGS (11)
  1. CHANTIX [Suspect]
     Indication: SMOKING CESSATION THERAPY
     Dosage: 0.5 mg, 1x/day
     Route: 048
  2. CHANTIX [Suspect]
     Dosage: 0.5 mg, 1x/day
     Route: 048
     Dates: start: 2012, end: 2012
  3. CHANTIX [Suspect]
     Dosage: 0.5 mg
     Route: 048
     Dates: start: 2012
  4. TRILEPTAL [Concomitant]
     Dosage: UNK
  5. WELLBUTRIN [Concomitant]
     Dosage: UNK
  6. KLONOPIN [Concomitant]
     Dosage: UNK
  7. MEDROXYPROGESTERONE [Concomitant]
     Dosage: UNK
  8. ESTRADIOL [Concomitant]
     Dosage: UNK
  9. RITALIN [Concomitant]
     Dosage: UNK
  10. TRAMADOL [Concomitant]
     Dosage: UNK
  11. FUROSEMIDE [Concomitant]
     Dosage: UNK

REACTIONS (3)
  - Irritability [Recovered/Resolved]
  - Drug ineffective [Unknown]
  - Drug intolerance [Unknown]
